FAERS Safety Report 18087758 (Version 2)
Quarter: 2020Q3

REPORT INFORMATION
  Report Type: Spontaneous
  Country: PT (occurrence: PT)
  Receive Date: 20200729
  Receipt Date: 20200810
  Transmission Date: 20201103
  Serious: Yes (Other)
  Sender: FDA-Public Use
  Company Number: PT-PFIZER INC-2020283115

PATIENT
  Age: 84 Year
  Sex: Male
  Weight: 75 kg

DRUGS (15)
  1. ENOXAPARIN SODIUM. [Concomitant]
     Active Substance: ENOXAPARIN SODIUM
     Dosage: 120 MG, 1X/DAY
     Route: 058
     Dates: start: 20200428, end: 20200520
  2. AZITHROMYCIN ANHYDROUS. [Suspect]
     Active Substance: AZITHROMYCIN ANHYDROUS
     Indication: COVID-19 PNEUMONIA
     Dosage: 500 MG, 1X/DAY
     Route: 042
     Dates: start: 20200326, end: 20200331
  3. PLAQUINOL [Suspect]
     Active Substance: HYDROXYCHLOROQUINE SULFATE
     Indication: COVID-19 PNEUMONIA
     Dosage: 400 MG, 2X/DAY(400MG 12 / 12H IN D0 AND THEN 200MG 12 / 12H)
     Route: 048
     Dates: start: 20200326, end: 20200406
  4. SERTRALINE [Concomitant]
     Active Substance: SERTRALINE HYDROCHLORIDE
     Dosage: 50 MG, 1X/DAY
     Route: 048
     Dates: start: 20200416, end: 20200520
  5. CEFAZOLIN [Concomitant]
     Active Substance: CEFAZOLIN
     Dosage: 3000 MG, 1X/DAY
     Route: 042
     Dates: start: 20200427, end: 20200429
  6. NIFEDIPINE. [Concomitant]
     Active Substance: NIFEDIPINE
     Dosage: 60 MG, 1X/DAY
     Route: 048
     Dates: start: 20200403, end: 20200520
  7. INDAPAMIDE. [Concomitant]
     Active Substance: INDAPAMIDE
     Dosage: 2.5 MG, 1X/DAY
     Route: 048
     Dates: start: 20200407, end: 20200520
  8. PLAQUINOL [Suspect]
     Active Substance: HYDROXYCHLOROQUINE SULFATE
     Dosage: 200 MG, 2X/DAY(400MG 12 / 12H IN D0 AND THEN 200MG 12 / 12H)
     Route: 048
     Dates: start: 20200326, end: 20200406
  9. CAPTOPRIL. [Concomitant]
     Active Substance: CAPTOPRIL
     Dosage: 25 MG, AS NEEDED
     Route: 048
     Dates: start: 20200424, end: 20200520
  10. OXAZEPAM. [Concomitant]
     Active Substance: OXAZEPAM
     Dosage: 15 MG, 1X/DAY
     Route: 048
     Dates: start: 20200416, end: 20200520
  11. PIPERACILLIN AND TAZOBACTAM [Concomitant]
     Active Substance: PIPERACILLIN SODIUM\TAZOBACTAM SODIUM
     Dosage: 9000 MG, 1X/DAY
     Route: 042
     Dates: start: 20200329, end: 20200407
  12. CANDESARTAN. [Concomitant]
     Active Substance: CANDESARTAN
     Dosage: 32 MG, 1X/DAY
     Route: 048
     Dates: start: 20200419, end: 20200520
  13. AMIODARONE [Concomitant]
     Active Substance: AMIODARONE
     Dosage: 200 MG, 1X/DAY
     Route: 048
     Dates: start: 20200423, end: 20200520
  14. OMEPRAZOLE. [Concomitant]
     Active Substance: OMEPRAZOLE
     Dosage: 20 MG, 1X/DAY
     Route: 048
     Dates: start: 20200403, end: 20200520
  15. QUETIAPINE. [Concomitant]
     Active Substance: QUETIAPINE
     Dosage: 25 MG, 1X/DAY
     Route: 048
     Dates: start: 20200415, end: 20200520

REACTIONS (6)
  - Cholestasis [Unknown]
  - Product use issue [Unknown]
  - Product use in unapproved indication [Unknown]
  - Hepatocellular injury [Unknown]
  - Acute kidney injury [Recovered/Resolved]
  - Off label use [Unknown]

NARRATIVE: CASE EVENT DATE: 20200326
